FAERS Safety Report 20200516 (Version 1)
Quarter: 2021Q4

REPORT INFORMATION
  Report Type: Spontaneous
  Country: US (occurrence: None)
  Receive Date: 20211216
  Receipt Date: 20211216
  Transmission Date: 20220303
  Serious: No
  Sender: FDA-Public Use
  Company Number: None

PATIENT

DRUGS (2)
  1. BLOXIVERZ [Suspect]
     Active Substance: NEOSTIGMINE METHYLSULFATE
  2. NEOSTIGMINE [Suspect]
     Active Substance: NEOSTIGMINE

REACTIONS (3)
  - Drug monitoring procedure not performed [None]
  - Wrong product stored [None]
  - Incorrect dose administered [None]
